FAERS Safety Report 14303500 (Version 3)
Quarter: 2018Q1

REPORT INFORMATION
  Report Type: Spontaneous
  Country: GB (occurrence: GB)
  Receive Date: 20171219
  Receipt Date: 20180108
  Transmission Date: 20180509
  Serious: Yes (Other)
  Sender: FDA-Public Use
  Company Number: GB-TEVA-2017-GB-832572

PATIENT
  Sex: Female

DRUGS (1)
  1. COPAXONE [Suspect]
     Active Substance: GLATIRAMER ACETATE
     Dosage: UNKNOWN DOSAGE STRENGTH
     Route: 065
     Dates: end: 2017

REACTIONS (3)
  - Maternal exposure during pregnancy [Unknown]
  - Malignant melanoma [Unknown]
  - Live birth [Unknown]

NARRATIVE: CASE EVENT DATE: 2017
